FAERS Safety Report 5935184-7 (Version None)
Quarter: 2008Q4

REPORT INFORMATION
  Report Type: 
  Country: None (occurrence: None)
  Receive Date: 20081030
  Receipt Date: 20081021
  Transmission Date: 20090506
  Serious: Yes (Hospitalization, Other)
  Sender: FDA-Public Use
  Company Number: NO-BAYER-200828995GPV

PATIENT
  Age: 16 Year
  Sex: Male

DRUGS (8)
  1. NIMODIPINE [Suspect]
     Indication: CEREBRAL VASOCONSTRICTION
     Route: 042
  2. VERAPAMIL [Concomitant]
     Indication: CEREBRAL VASOCONSTRICTION
     Route: 065
  3. METOCLOPRAMIDE [Concomitant]
     Indication: NAUSEA
     Route: 065
  4. ACETAMINOPHEN [Concomitant]
     Indication: MIGRAINE
     Route: 065
  5. KETOBEMIDONE [Concomitant]
     Indication: MIGRAINE
     Route: 065
  6. SODIUM CHLORIDE [Concomitant]
     Indication: MIGRAINE
     Route: 042
  7. ACETYLSALICYLIC ACID SRT [Concomitant]
     Indication: FAMILIAL HEMIPLEGIC MIGRAINE
     Route: 065
  8. PROPRANOLOL [Concomitant]
     Indication: FAMILIAL HEMIPLEGIC MIGRAINE
     Route: 065

REACTIONS (2)
  - FAMILIAL HEMIPLEGIC MIGRAINE [None]
  - GRAND MAL CONVULSION [None]
